FAERS Safety Report 8077441-7 (Version None)
Quarter: 2012Q1

REPORT INFORMATION
  Report Type: 
  Country: None (occurrence: None)
  Receive Date: 20120127
  Receipt Date: 20120124
  Transmission Date: 20120608
  Serious: Yes (Death)
  Sender: FDA-Public Use
  Company Number: PHHY2011CA10169

PATIENT
  Sex: Female
  Weight: 59 kg

DRUGS (3)
  1. CALCIUM [Concomitant]
     Dosage: UNK UKN, UNK
     Dates: start: 20090909
  2. VITAMIN D [Concomitant]
     Dosage: UNK UKN, WEEKLY
     Dates: start: 20090909
  3. ZOLEDRONOC ACID [Suspect]
     Indication: OSTEOPOROSIS
     Dosage: 5 MG, ANNUALLY
     Route: 042
     Dates: start: 20100212

REACTIONS (1)
  - DEATH [None]
